FAERS Safety Report 17026009 (Version 1)
Quarter: 2019Q4

REPORT INFORMATION
  Report Type: Spontaneous
  Country: US (occurrence: US)
  Receive Date: 20191009
  Receipt Date: 20191009
  Transmission Date: 20200122
  Serious: No
  Sender: FDA-Public Use
  Company Number: None

PATIENT
  Age: 79 Year
  Sex: Female

DRUGS (2)
  1. KISQALI [Suspect]
     Active Substance: RIBOCICLIB
     Route: 048
     Dates: start: 201909
  2. FASLODEX [Suspect]
     Active Substance: FULVESTRANT

REACTIONS (4)
  - Coating in mouth [None]
  - Tooth discolouration [None]
  - Saliva altered [None]
  - Taste disorder [None]

NARRATIVE: CASE EVENT DATE: 20191009
